FAERS Safety Report 25576633 (Version 1)
Quarter: 2025Q3

REPORT INFORMATION
  Report Type: Spontaneous
  Country: US (occurrence: None)
  Receive Date: 20250718
  Receipt Date: 20250718
  Transmission Date: 20251020
  Serious: No
  Sender: ENCUBE ETHICALS
  Company Number: US-Encube-002034

PATIENT
  Age: 69 Year
  Sex: Female

DRUGS (2)
  1. CLOBETASOL PROPIONATE [Suspect]
     Active Substance: CLOBETASOL PROPIONATE
     Indication: Lichen sclerosus
     Dosage: ONCE A DAY FOR A COUPLE OF DAYS
     Dates: start: 20250624, end: 20250705
  2. CLOBETASOL PROPIONATE [Suspect]
     Active Substance: CLOBETASOL PROPIONATE
     Indication: Lichen sclerosus
     Dates: start: 20250624, end: 20250705

REACTIONS (5)
  - Vulval disorder [Not Recovered/Not Resolved]
  - Mass [Not Recovered/Not Resolved]
  - Vulval ulceration [Not Recovered/Not Resolved]
  - Off label use [Unknown]
  - Inappropriate schedule of product administration [Unknown]

NARRATIVE: CASE EVENT DATE: 20250101
